FAERS Safety Report 6906376-5 (Version None)
Quarter: 2010Q3

REPORT INFORMATION
  Report Type: 
  Country: None (occurrence: None)
  Receive Date: 20100804
  Receipt Date: 20100729
  Transmission Date: 20110219
  Serious: Yes (Hospitalization)
  Sender: FDA-Public Use
  Company Number: A0872949A

PATIENT
  Age: 71 Year
  Sex: Female

DRUGS (8)
  1. ADVAIR DISKUS 100/50 [Suspect]
     Indication: ASTHMA
     Dosage: 1PUFF TWICE PER DAY
     Route: 055
     Dates: start: 20080101
  2. SPIRIVA [Concomitant]
  3. NEBULIZER [Concomitant]
  4. PROAIR HFA [Concomitant]
  5. PREDNISONE [Concomitant]
  6. ATIVAN [Concomitant]
  7. MELLARIL [Concomitant]
  8. UNSPECIFIED MEDICATION [Concomitant]
     Indication: BLADDER DISORDER

REACTIONS (8)
  - BEDRIDDEN [None]
  - BRONCHITIS CHRONIC [None]
  - DYSPNOEA [None]
  - FATIGUE [None]
  - LUNG DISORDER [None]
  - MALAISE [None]
  - PNEUMONIA [None]
  - PRODUCT QUALITY ISSUE [None]
